FAERS Safety Report 8218501-7 (Version None)
Quarter: 2012Q1

REPORT INFORMATION
  Report Type: 
  Country: None (occurrence: None)
  Receive Date: 20120319
  Receipt Date: 20120309
  Transmission Date: 20120608
  Serious: Yes (Hospitalization)
  Sender: FDA-Public Use
  Company Number: US-ACTELION-A-US2011-49573

PATIENT

DRUGS (5)
  1. COUMADIN [Concomitant]
  2. CIALIS [Concomitant]
  3. VIAGRA [Concomitant]
  4. TRACLEER [Suspect]
     Indication: PULMONARY ARTERIAL HYPERTENSION
     Dosage: UNK
     Route: 048
     Dates: start: 20081110
  5. CALCIUM CHANNEL BLOCKERS [Concomitant]

REACTIONS (8)
  - HEADACHE [None]
  - MALAISE [None]
  - HALLUCINATION [None]
  - HYPOTENSION [None]
  - DIARRHOEA [None]
  - VISION BLURRED [None]
  - FLUSHING [None]
  - FEELING COLD [None]
